FAERS Safety Report 8608760-0 (Version None)
Quarter: 2012Q3

REPORT INFORMATION
  Report Type: 
  Country: None (occurrence: None)
  Receive Date: 20120821
  Receipt Date: 20120814
  Transmission Date: 20120928
  Serious: Yes (Other)
  Sender: FDA-Public Use
  Company Number: US-CELGENEUS-163-21880-12081768

PATIENT
  Sex: Male

DRUGS (2)
  1. LOVENOX [Concomitant]
     Route: 065
  2. REVLIMID [Suspect]
     Indication: MULTIPLE MYELOMA
     Dosage: 3.3333 MILLIGRAM
     Route: 048
     Dates: start: 20110819

REACTIONS (2)
  - SKIN DISCOLOURATION [None]
  - HAEMORRHAGE [None]
